FAERS Safety Report 19410931 (Version 1)
Quarter: 2021Q2

REPORT INFORMATION
  Report Type: Report from Study
  Country: DZ (occurrence: DZ)
  Receive Date: 20210614
  Receipt Date: 20210614
  Transmission Date: 20210717
  Serious: Yes (Death, Hospitalization, Other)
  Sender: FDA-Public Use
  Company Number: DZ-CIPLA LTD.-2021DZ03877

PATIENT

DRUGS (4)
  1. BEVACIZUMAB. [Suspect]
     Active Substance: BEVACIZUMAB
     Indication: COLORECTAL CANCER METASTATIC
     Dosage: 525 MILLIGRAM, EVERY 21 DAYS
     Route: 042
     Dates: start: 20210426, end: 20210426
  2. CAPEGARD [Suspect]
     Active Substance: CAPECITABINE
     Indication: COLORECTAL CANCER
     Dosage: 2500 MILLIGRAM, EVERY 21 DAYS
     Route: 042
     Dates: start: 20210426, end: 20210426
  3. IRINOTECAN [Suspect]
     Active Substance: IRINOTECAN
     Indication: COLORECTAL CANCER
     Dosage: 330 MILLIGRAM, EVERY 21 DAYS
     Route: 042
     Dates: start: 20210426, end: 20210426
  4. XELODA [Suspect]
     Active Substance: CAPECITABINE
     Indication: COLORECTAL CANCER
     Dosage: 2500 MILLIGRAM, EVERY 21 DAYS
     Route: 042
     Dates: start: 20210426, end: 20210426

REACTIONS (1)
  - Acute kidney injury [Fatal]

NARRATIVE: CASE EVENT DATE: 20210527
